FAERS Safety Report 13080888 (Version 3)
Quarter: 2017Q1

REPORT INFORMATION
  Report Type: Report from Study
  Country: BR (occurrence: BR)
  Receive Date: 20170103
  Receipt Date: 20170201
  Transmission Date: 20170428
  Serious: Yes (Other)
  Sender: FDA-Public Use
  Company Number: BR-JNJFOC-20161226730

PATIENT
  Age: 62 Year
  Sex: Female
  Weight: 86 kg

DRUGS (9)
  1. ASTROGLIDE [Concomitant]
     Route: 065
  2. HIDROCLOROTIAZIDE [Concomitant]
     Active Substance: HYDROCHLOROTHIAZIDE
     Route: 065
  3. ARAVA [Concomitant]
     Active Substance: LEFLUNOMIDE
     Route: 065
  4. SIMPONI [Suspect]
     Active Substance: GOLIMUMAB
     Indication: RHEUMATOID ARTHRITIS
     Route: 058
     Dates: start: 20161207
  5. IBUPROFEN. [Concomitant]
     Active Substance: IBUPROFEN
     Route: 065
  6. LOSARTAN. [Concomitant]
     Active Substance: LOSARTAN
     Route: 065
  7. CALCIUM [Concomitant]
     Active Substance: CALCIUM
     Route: 065
  8. PREDNISONE. [Concomitant]
     Active Substance: PREDNISONE
     Route: 065
  9. SODIUM BICARBONATE. [Concomitant]
     Active Substance: SODIUM BICARBONATE
     Route: 065

REACTIONS (1)
  - Dengue fever [Recovered/Resolved]

NARRATIVE: CASE EVENT DATE: 201612
